FAERS Safety Report 8436025-9 (Version None)
Quarter: 2012Q2

REPORT INFORMATION
  Report Type: 
  Country: None (occurrence: None)
  Receive Date: 20120607
  Receipt Date: 20120607
  Transmission Date: 20120825
  Serious: No
  Sender: FDA-Public Use
  Company Number: None

PATIENT
  Sex: Female

DRUGS (1)
  1. PROLIA [Suspect]
     Indication: OSTEOPOROSIS
     Dosage: 60MG EVERY 6 MONTHS SQ
     Route: 058
     Dates: start: 20120531, end: 20120606

REACTIONS (3)
  - HEADACHE [None]
  - INJECTION SITE PAIN [None]
  - NAUSEA [None]
